FAERS Safety Report 5293692-9 (Version None)
Quarter: 2007Q2

REPORT INFORMATION
  Report Type: 
  Country: None (occurrence: None)
  Receive Date: 20070405
  Receipt Date: 20070325
  Transmission Date: 20071010
  Serious: Yes (Other)
  Sender: FDA-Public Use
  Company Number: 2007SP005457

PATIENT
  Age: 50 Year
  Sex: Male

DRUGS (1)
  1. INTEGRILIN [Suspect]
     Indication: THROMBOSIS

REACTIONS (3)
  - DIALYSIS [None]
  - MYOCARDIAL INFARCTION [None]
  - PROCEDURAL COMPLICATION [None]
